FAERS Safety Report 9789935 (Version 2)
Quarter: 2014Q1

REPORT INFORMATION
  Report Type: Spontaneous
  Country: PL (occurrence: PL)
  Receive Date: 20131231
  Receipt Date: 20140203
  Transmission Date: 20141002
  Serious: Yes (Hospitalization)
  Sender: FDA-Public Use
  Company Number: PL-JNJFOC-20131213927

PATIENT
  Age: 60 Year
  Sex: Male
  Weight: 81 kg

DRUGS (1)
  1. DOXORUBICIN HYDROCHLORIDE [Suspect]
     Indication: LYMPHOMA
     Dosage: (99.14)DOSE AND FREQUENCY UNSPECIFIED.
     Route: 042
     Dates: start: 20131002

REACTIONS (3)
  - Injection site pain [Unknown]
  - Infusion site extravasation [Unknown]
  - Injection site erythema [Unknown]
